FAERS Safety Report 8257154-9 (Version None)
Quarter: 2012Q1

REPORT INFORMATION
  Report Type: 
  Country: None (occurrence: None)
  Receive Date: 20120322
  Receipt Date: 20120217
  Transmission Date: 20120608
  Serious: Yes (Hospitalization)
  Sender: FDA-Public Use
  Company Number: UTC-015725

PATIENT
  Age: 67 Year
  Sex: Female
  Weight: 67.3 kg

DRUGS (3)
  1. REVATIO [Concomitant]
  2. DIURETICS (DIURETICS) [Concomitant]
  3. TYVASO [Suspect]
     Indication: PULMONARY HYPERTENSION
     Dosage: 18-72 MICROGRAMS (4 IN 1 D), INHALATION
     Route: 055
     Dates: start: 20110516

REACTIONS (1)
  - ATRIAL FIBRILLATION [None]
